FAERS Safety Report 10217776 (Version 1)
Quarter: 2014Q2

REPORT INFORMATION
  Report Type: Spontaneous
  Country: FR (occurrence: FR)
  Receive Date: 20140604
  Receipt Date: 20140604
  Transmission Date: 20141212
  Serious: Yes (Hospitalization)
  Sender: FDA-Public Use
  Company Number: FR-AMGEN INC.-FRASP2014040540

PATIENT
  Age: 76 Year
  Sex: Female

DRUGS (19)
  1. NEULASTA [Suspect]
     Indication: NEUTROPENIA
     Dosage: UNK
     Route: 065
     Dates: start: 20140214
  2. PERTUZUMAB [Suspect]
     Indication: BREAST CANCER METASTATIC
     Dosage: 840 MG, CYCLE 1 AS PER PROTOCOL
     Route: 042
     Dates: start: 20140213
  3. PERTUZUMAB [Suspect]
     Dosage: 420 MG, Q3WK
     Route: 042
  4. MEDROL                             /00049601/ [Concomitant]
     Indication: NAUSEA
     Dosage: 16 MGX2
     Dates: start: 20140212
  5. POLARAMINE [Concomitant]
     Indication: HYPERSENSITIVITY
     Dosage: 5 MG, UNK
     Dates: start: 20140213
  6. METHYLPREDNISOLONE [Concomitant]
     Indication: HYPERSENSITIVITY
     Dosage: 60 MG, UNK
     Dates: start: 20140213
  7. RYTHMODAN                          /00271801/ [Concomitant]
     Dosage: UNK
     Dates: start: 2006
  8. NEBIVOLOL [Concomitant]
     Dosage: UNK
     Dates: start: 201308
  9. LYRICA [Concomitant]
     Dosage: UNK
     Dates: start: 2009
  10. MINIRIN                            /00361902/ [Concomitant]
     Dosage: UNK
     Dates: start: 201308
  11. HYDROCORTISONE [Concomitant]
     Dosage: UNK
     Dates: start: 201308
  12. LEVOTHYROX [Concomitant]
     Dosage: UNK
     Dates: start: 201308
  13. BEPANTHENE [Concomitant]
     Dosage: UNK
     Dates: start: 20140313
  14. MONURIL [Concomitant]
     Dosage: 1 POUCH
     Dates: start: 20140327, end: 20140329
  15. LOMEXIN [Concomitant]
     Dosage: 10 VULE
     Dates: start: 20140327, end: 20140327
  16. LOPERAMIDE [Concomitant]
     Dosage: UNK
     Dates: start: 20140331, end: 20140403
  17. AUGMENTIN [Concomitant]
     Dosage: UNK
     Dates: start: 20140428, end: 20140428
  18. OFLOCET                            /00731801/ [Concomitant]
     Dosage: UNK
     Dates: start: 20140428, end: 20140428
  19. ROCEPHINE [Concomitant]
     Dosage: UNK
     Dates: start: 20140429, end: 20140504

REACTIONS (1)
  - Pyrexia [Not Recovered/Not Resolved]
